FAERS Safety Report 5117284-7 (Version None)
Quarter: 2006Q3

REPORT INFORMATION
  Report Type: 
  Country: None (occurrence: None)
  Receive Date: 20060929
  Receipt Date: 20060920
  Transmission Date: 20061208
  Serious: Yes (Other)
  Sender: FDA-Public Use
  Company Number: BR-BAYER-200614216GDS

PATIENT

DRUGS (2)
  1. ASPIRIN [Suspect]
     Indication: INTENTIONAL OVERDOSE
     Dosage: UNIT DOSE: 500 MG
     Route: 048
     Dates: start: 20060920, end: 20060920
  2. ALCOHOLIC DRINK [Suspect]
     Indication: INTENTIONAL OVERDOSE

REACTIONS (2)
  - INTENTIONAL OVERDOSE [None]
  - LOSS OF CONSCIOUSNESS [None]
